FAERS Safety Report 14178098 (Version 3)
Quarter: 2018Q1

REPORT INFORMATION
  Report Type: Spontaneous
  Country: GR (occurrence: GR)
  Receive Date: 20171110
  Receipt Date: 20180312
  Transmission Date: 20180508
  Serious: Yes (Hospitalization)
  Sender: FDA-Public Use
  Company Number: GR-VALIDUS PHARMACEUTICALS LLC-GR-2017VAL001514

PATIENT
  Age: 68 Year
  Sex: Male

DRUGS (9)
  1. ENALAPRIL                          /00574902/ [Suspect]
     Active Substance: ENALAPRIL
     Indication: PRODUCT USED FOR UNKNOWN INDICATION
     Dosage: 5 MG, EVERY 12 HOURS
     Route: 048
  2. EPLERENONE. [Concomitant]
     Active Substance: EPLERENONE
     Indication: PRODUCT USED FOR UNKNOWN INDICATION
     Dosage: UNK
  3. CARVEDILOL. [Suspect]
     Active Substance: CARVEDILOL
     Dosage: 12.5 MG, EVERY 12 HOURS
     Route: 065
  4. CARVEDILOL. [Suspect]
     Active Substance: CARVEDILOL
     Indication: PRODUCT USED FOR UNKNOWN INDICATION
     Dosage: 6.5 MG, EVERY 12 HOURS
     Route: 065
  5. FUROSEMIDE. [Suspect]
     Active Substance: FUROSEMIDE
     Dosage: 80 MG, UNK
     Route: 040
  6. FUROSEMIDE. [Suspect]
     Active Substance: FUROSEMIDE
     Dosage: 80 MG, QD
     Route: 065
  7. CARVEDILOL. [Suspect]
     Active Substance: CARVEDILOL
     Dosage: UNK
     Route: 065
  8. FUROSEMIDE. [Suspect]
     Active Substance: FUROSEMIDE
     Indication: PRODUCT USED FOR UNKNOWN INDICATION
     Dosage: 40 MG, QD
     Route: 048
  9. FUROSEMIDE. [Suspect]
     Active Substance: FUROSEMIDE
     Dosage: 40 MG, EVERY 12 HOURS
     Route: 048

REACTIONS (9)
  - Oedema peripheral [Recovering/Resolving]
  - Cardiac dysfunction [Recovering/Resolving]
  - Dyspnoea at rest [Recovering/Resolving]
  - Drug resistance [Recovering/Resolving]
  - Condition aggravated [Recovering/Resolving]
  - Therapy non-responder [Recovering/Resolving]
  - Renal impairment [Recovering/Resolving]
  - Cardiac failure acute [Recovering/Resolving]
  - Weight increased [Recovering/Resolving]
